FAERS Safety Report 8299960-0 (Version None)
Quarter: 2012Q2

REPORT INFORMATION
  Report Type: 
  Country: None (occurrence: None)
  Receive Date: 20120420
  Receipt Date: 20120411
  Transmission Date: 20120825
  Serious: No
  Sender: FDA-Public Use
  Company Number: US-BIOGENIDEC-2012BI012913

PATIENT
  Age: 38 Year
  Sex: Male

DRUGS (2)
  1. TYSABRI [Suspect]
     Indication: MULTIPLE SCLEROSIS
     Route: 042
     Dates: start: 20081226
  2. EUCERIN OINTMENT [Concomitant]
     Indication: DERMATITIS CONTACT

REACTIONS (4)
  - JOINT STIFFNESS [None]
  - ARTHRALGIA [None]
  - MUSCLE RUPTURE [None]
  - EPICONDYLITIS [None]
